FAERS Safety Report 9732616 (Version 4)
Quarter: 2014Q1

REPORT INFORMATION
  Report Type: Report from Study
  Country: FR (occurrence: FR)
  Receive Date: 20131205
  Receipt Date: 20140114
  Transmission Date: 20141002
  Serious: Yes (Other)
  Sender: FDA-Public Use
  Company Number: FR-JNJFOC-20130913487

PATIENT
  Sex: 0

DRUGS (5)
  1. RISPERDAL [Suspect]
     Indication: PRODUCT USED FOR UNKNOWN INDICATION
     Route: 065
  2. TERCIAN [Suspect]
     Indication: PRODUCT USED FOR UNKNOWN INDICATION
     Route: 065
  3. ABILIFY [Suspect]
     Indication: PRODUCT USED FOR UNKNOWN INDICATION
     Route: 065
  4. DEPAKOTE [Concomitant]
     Route: 065
  5. DOGMATIL [Concomitant]
     Route: 065

REACTIONS (8)
  - Weight increased [Unknown]
  - Hypoglycaemia [Unknown]
  - Dependence [Unknown]
  - Feeling abnormal [Unknown]
  - Insomnia [Unknown]
  - Nightmare [Unknown]
  - Anxiety [Unknown]
  - Syncope [Unknown]
